FAERS Safety Report 26125315 (Version 1)
Quarter: 2025Q4

REPORT INFORMATION
  Report Type: Spontaneous
  Country: US (occurrence: None)
  Receive Date: 20251205
  Receipt Date: 20251205
  Transmission Date: 20260118
  Serious: Yes (Death, Hospitalization)
  Sender: FDA-CTU
  Company Number: None

PATIENT
  Age: 62 Year
  Sex: Male
  Weight: 81 kg

DRUGS (4)
  1. CARBOPLATIN [Suspect]
     Active Substance: CARBOPLATIN
     Dosage: OTHER FREQUENCY : TOTAL DOSE ADMINISTERED FOR THE PATIENT^S CHEMOTHERAPY TREATMENT; 1,090MG 08/15/-200MG 08/25-200MG ;?
     Dates: end: 20250922
  2. DURVALUMAB [Suspect]
     Active Substance: DURVALUMAB
     Dosage: OTHER FREQUENCY : TOTAL ADMINISTERED TO PATIENT FOR TREATMENT: 1500MG ;?
     Dates: end: 20251010
  3. PACLITAXEL [Suspect]
     Active Substance: PACLITAXEL
     Dosage: OTHER FREQUENCY : TOTAL DOSE ;?
     Dates: end: 20250922
  4. TAXOL [Suspect]
     Active Substance: PACLITAXEL
     Dosage: OTHER FREQUENCY : ADMINISTERED FORTHE PATIENT^S CHEMOTHERAPY TREATMENT 510 MG 08/15-102MG, 08/25-102, 09/02-102MG;?

REACTIONS (6)
  - Pneumonitis [None]
  - Cardiac failure [None]
  - Acute respiratory failure [None]
  - Respiratory failure [None]
  - Interstitial lung disease [None]
  - Condition aggravated [None]

NARRATIVE: CASE EVENT DATE: 20251108
